FAERS Safety Report 15789486 (Version 2)
Quarter: 2019Q1

REPORT INFORMATION
  Report Type: Spontaneous
  Country: US (occurrence: US)
  Receive Date: 20190104
  Receipt Date: 20190215
  Transmission Date: 20190417
  Serious: Yes (Other)
  Sender: FDA-Public Use
  Company Number: US-TEVA-2018-US-993839

PATIENT
  Sex: Female

DRUGS (1)
  1. METFORMIN HYDROCHLORIDE EXTENDED RELEASE TABLET [Suspect]
     Active Substance: METFORMIN HYDROCHLORIDE
     Dosage: DOSE STRENGTH: 500
     Route: 065

REACTIONS (1)
  - Blood glucose increased [Unknown]
